FAERS Safety Report 12671564 (Version 1)
Quarter: 2016Q3

REPORT INFORMATION
  Report Type: Spontaneous
  Country: US (occurrence: None)
  Receive Date: 20160819
  Receipt Date: 20160819
  Transmission Date: 20161109
  Serious: Yes (Death, Hospitalization)
  Sender: FDA-Public Use
  Company Number: None

PATIENT
  Age: 61 Year
  Sex: Female
  Weight: 49.9 kg

DRUGS (2)
  1. FLUDARABINE PHOSPHATE. [Suspect]
     Active Substance: FLUDARABINE PHOSPHATE
     Dates: end: 20160807
  2. CYCLOPHOSPHAMIDE. [Suspect]
     Active Substance: CYCLOPHOSPHAMIDE
     Dates: end: 20160805

REACTIONS (10)
  - Pulmonary oedema [None]
  - Tardive dyskinesia [None]
  - Hypertension [None]
  - Status epilepticus [None]
  - Leukaemia [None]
  - Pneumonia [None]
  - Influenza [None]
  - Toxic leukoencephalopathy [None]
  - Cardio-respiratory arrest [None]
  - Tremor [None]

NARRATIVE: CASE EVENT DATE: 20160808
